FAERS Safety Report 12918280 (Version 1)
Quarter: 2016Q4

REPORT INFORMATION
  Report Type: Spontaneous
  Country: JP (occurrence: JP)
  Receive Date: 20161107
  Receipt Date: 20161107
  Transmission Date: 20170207
  Serious: Yes (Life-Threatening, Hospitalization)
  Sender: FDA-Public Use
  Company Number: JP-NOVOPROD-500430

PATIENT
  Age: 59 Year
  Sex: Male

DRUGS (16)
  1. SUREPOST [Suspect]
     Active Substance: REPAGLINIDE
     Dosage: UNK (DOSE DECREASED)
     Route: 048
  2. SOLITA-T 3G [Concomitant]
     Dosage: 500 ML PER HOUR
     Route: 065
     Dates: start: 20160628
  3. SUREPOST [Suspect]
     Active Substance: REPAGLINIDE
     Indication: DIABETES MELLITUS
     Dosage: 1.5 MG, QD
     Route: 048
  4. SUREPOST [Suspect]
     Active Substance: REPAGLINIDE
     Dosage: UNK
     Route: 048
     Dates: end: 20160705
  5. PREDNISOLONE. [Concomitant]
     Active Substance: PREDNISOLONE
     Dosage: 25 MG, QD
     Route: 048
  6. MICARDIS [Concomitant]
     Active Substance: TELMISARTAN
     Dosage: 20 MG, QD
     Route: 048
  7. METGLUCO [Concomitant]
     Active Substance: METFORMIN HYDROCHLORIDE
     Indication: DIABETES MELLITUS
     Dosage: 500 MG, QD
     Route: 048
  8. TRYPTANOL                          /00002202/ [Suspect]
     Active Substance: AMITRIPTYLINE
     Dosage: 30 MG, QD
     Route: 048
     Dates: start: 20160622
  9. BENZALIN                           /00036201/ [Concomitant]
     Active Substance: NITRAZEPAM
     Dosage: 5 MG, QD
     Route: 048
  10. BONALON [Concomitant]
     Active Substance: ALENDRONATE SODIUM
     Dosage: 35 MG, QD
     Route: 048
  11. LANSOPRAZOLE. [Concomitant]
     Active Substance: LANSOPRAZOLE
     Dosage: 15 MG, QD
     Route: 048
  12. ATORVASTATIN CALCIUM TRIHYDRATE [Concomitant]
     Active Substance: ATORVASTATIN CALCIUM
     Dosage: 5 MG, QD
     Route: 048
  13. SEIBULE [Concomitant]
     Active Substance: MIGLITOL
     Indication: DIABETES MELLITUS
     Dosage: 225 MG, QD
     Route: 048
  14. TRYPTANOL                          /00002202/ [Suspect]
     Active Substance: AMITRIPTYLINE
     Indication: DEPRESSION
     Dosage: 20 MG, QD
     Route: 048
  15. SOLITA-T 3G [Concomitant]
     Indication: HYPOGLYCAEMIA
     Dosage: 60 ML PER HOUR
     Route: 065
     Dates: start: 20160627
  16. PROGRAF [Concomitant]
     Active Substance: TACROLIMUS\TACROLIMUS ANHYDROUS
     Dosage: 6 MG, QD
     Route: 048

REACTIONS (2)
  - Hypoglycaemia [Recovered/Resolved]
  - Drug interaction [Unknown]

NARRATIVE: CASE EVENT DATE: 20160627
